FAERS Safety Report 9503234 (Version 4)
Quarter: 2013Q4

REPORT INFORMATION
  Report Type: Spontaneous
  Country: US (occurrence: US)
  Receive Date: 20130906
  Receipt Date: 20131018
  Transmission Date: 20140711
  Serious: No
  Sender: FDA-Public Use
  Company Number: US-009507513-1309USA000728

PATIENT
  Age: 18 Year
  Sex: Female

DRUGS (1)
  1. IMPLANON [Suspect]
     Indication: CONTRACEPTION
     Dosage: UNK
     Route: 059
     Dates: start: 2010

REACTIONS (6)
  - Haemorrhage [Unknown]
  - Amenorrhoea [Not Recovered/Not Resolved]
  - Device dislocation [Unknown]
  - Medical device complication [Unknown]
  - Expired drug administered [Unknown]
  - Incorrect drug administration duration [Unknown]
